FAERS Safety Report 4481714-4 (Version None)
Quarter: 2004Q4

REPORT INFORMATION
  Report Type: 
  Country: None (occurrence: None)
  Receive Date: 20041021
  Receipt Date: 20041008
  Transmission Date: 20050328
  Serious: Yes (Life-Threatening, Hospitalization)
  Sender: FDA-Public Use
  Company Number: US-MERCK-0410USA01461

PATIENT
  Age: 43 Year
  Sex: Male
  Weight: 115 kg

DRUGS (16)
  1. VIOXX [Suspect]
     Indication: BACK PAIN
     Route: 048
     Dates: start: 20031211, end: 20031201
  2. VIOXX [Suspect]
     Route: 048
     Dates: start: 20040325, end: 20040930
  3. VIOXX [Suspect]
     Indication: NECK PAIN
     Route: 048
     Dates: start: 20031211, end: 20031201
  4. VIOXX [Suspect]
     Route: 048
     Dates: start: 20040325, end: 20040930
  5. LORCET-HD [Concomitant]
     Route: 065
  6. GLUCOPHAGE [Concomitant]
     Route: 065
  7. ULTRAM [Concomitant]
     Route: 065
  8. ACTOS [Concomitant]
     Route: 065
  9. PRINIVIL [Concomitant]
     Route: 065
  10. EFFEXOR [Concomitant]
     Route: 065
  11. XANAX [Concomitant]
     Route: 065
  12. ZANTAC [Concomitant]
     Route: 065
  13. NEURONTIN [Concomitant]
     Route: 065
  14. PERCOCET [Concomitant]
     Route: 065
  15. METHADONE HYDROCHLORIDE [Concomitant]
     Route: 065
     Dates: end: 20040325
  16. CELEBREX [Concomitant]
     Route: 048
     Dates: end: 20031201

REACTIONS (5)
  - BACK DISORDER [None]
  - CHEST PAIN [None]
  - COLD SWEAT [None]
  - HEADACHE [None]
  - HYPERTENSION [None]
